FAERS Safety Report 13193928 (Version 1)
Quarter: 2017Q1

REPORT INFORMATION
  Report Type: Report from Study
  Country: BR (occurrence: BR)
  Receive Date: 20170207
  Receipt Date: 20170207
  Transmission Date: 20170428
  Serious: Yes (Death)
  Sender: FDA-Public Use
  Company Number: PHHY2017BR019203

PATIENT
  Age: 86 Year
  Sex: Male
  Weight: 80 kg

DRUGS (1)
  1. EXELON PATCH [Suspect]
     Active Substance: RIVASTIGMINE
     Indication: DEMENTIA ALZHEIMER^S TYPE
     Dosage: QD
     Route: 062

REACTIONS (5)
  - Condition aggravated [Fatal]
  - Cardio-respiratory arrest [Fatal]
  - Dementia Alzheimer^s type [Fatal]
  - Hypertension [Fatal]
  - Parkinson^s disease [Fatal]
